FAERS Safety Report 15960740 (Version 1)
Quarter: 2019Q1

REPORT INFORMATION
  Report Type: Spontaneous
  Country: AT (occurrence: AT)
  Receive Date: 20190214
  Receipt Date: 20190214
  Transmission Date: 20190417
  Serious: Yes (Other)
  Sender: FDA-Public Use
  Company Number: AT-CELLTRION INC.-2019AT018553

PATIENT

DRUGS (7)
  1. OFATUMUMAB [Concomitant]
     Active Substance: OFATUMUMAB
     Dosage: 1000 MG, DAY 8
     Route: 065
  2. BENDAMUSTINE [Concomitant]
     Active Substance: BENDAMUSTINE
     Indication: HAIRY CELL LEUKAEMIA
     Dosage: 2000 MG, DAY 15 AND DAY 22
     Route: 065
  3. BENDAMUSTINE [Concomitant]
     Active Substance: BENDAMUSTINE
     Dosage: 300 MG, DAY 1
     Route: 065
  4. RITUXIMAB (UNKNOWN) [Suspect]
     Active Substance: RITUXIMAB
     Indication: HAIRY CELL LEUKAEMIA
     Dosage: 375 MG/M2, DAY 1
     Route: 042
  5. BENDAMUSTINE [Suspect]
     Active Substance: BENDAMUSTINE
     Indication: HAIRY CELL LEUKAEMIA
     Dosage: 100 MG/M2 ON DAYS 1 AND 2
     Route: 065
  6. IBRUTINIB [Concomitant]
     Active Substance: IBRUTINIB
     Indication: HAIRY CELL LEUKAEMIA
     Dosage: 420 MG
     Route: 065
  7. 2-CDA [Concomitant]
     Active Substance: CLADRIBINE
     Indication: HAIRY CELL LEUKAEMIA
     Dosage: UNK

REACTIONS (5)
  - Therapy non-responder [Unknown]
  - Hairy cell leukaemia [Recovered/Resolved]
  - Type IV hypersensitivity reaction [Unknown]
  - Skin toxicity [Unknown]
  - Product use in unapproved indication [Unknown]
